FAERS Safety Report 7612112-X (Version None)
Quarter: 2011Q3

REPORT INFORMATION
  Report Type: 
  Country: None (occurrence: None)
  Receive Date: 20110715
  Receipt Date: 20110711
  Transmission Date: 20111222
  Serious: Yes (Other)
  Sender: FDA-Public Use
  Company Number: US-ELI_LILLY_AND_COMPANY-US200906005664

PATIENT
  Sex: Female
  Weight: 84.354 kg

DRUGS (13)
  1. LEXAPRO [Concomitant]
  2. SEROQUEL [Concomitant]
     Indication: BIPOLAR DISORDER
  3. BYETTA [Suspect]
     Dosage: 10 UG, BID
     Dates: end: 20071201
  4. TRILEPTAL [Concomitant]
     Indication: BIPOLAR DISORDER
  5. NAPROSYN [Concomitant]
     Indication: SWELLING
  6. REQUIP [Concomitant]
  7. SIMVASTATIN [Concomitant]
     Indication: HYPERCHOLESTEROLAEMIA
  8. ZOCOR [Concomitant]
     Dosage: UNK
  9. BYETTA [Suspect]
     Dosage: 5 UG, BID
     Dates: start: 20070801
  10. LORAZEPAM [Concomitant]
     Indication: ANXIETY
  11. HYDROCODONE [Concomitant]
     Dosage: 1 DF, PRN
  12. METFORMIN HCL [Concomitant]
     Indication: DIABETES MELLITUS
     Dosage: 2500 MG, QD
  13. CLOBETASOL PROPIONATE [Concomitant]
     Indication: PRURITUS

REACTIONS (13)
  - RENAL INJURY [None]
  - CHEST PAIN [None]
  - PANCREATITIS ACUTE [None]
  - BACK PAIN [None]
  - PANCREATITIS CHRONIC [None]
  - BLOOD GLUCOSE INCREASED [None]
  - DIARRHOEA [None]
  - HAEMATEMESIS [None]
  - FLATULENCE [None]
  - VERTIGO [None]
  - GALLBLADDER DISORDER [None]
  - DEPRESSION [None]
  - DYSLIPIDAEMIA [None]
